FAERS Safety Report 9275117 (Version 4)
Quarter: 2013Q3

REPORT INFORMATION
  Report Type: Spontaneous
  Country: IT (occurrence: None)
  Receive Date: 20121204
  Receipt Date: 20130723
  Transmission Date: 20140515
  Serious: Yes (Death, Hospitalization)
  Sender: FDA-Public Use
  Company Number: ACO_32663_2012

PATIENT
  Age: 62 Year
  Sex: Male
  Weight: 70 kg

DRUGS (5)
  1. FAMPRIDINE-SR [Suspect]
     Indication: MULTIPLE SCLEROSIS
     Route: 048
     Dates: start: 20120618
  2. GLATIRAMER ACETATE [Concomitant]
  3. LOSARTAN + HIDROCLOROTIAZIDA (HYDROCHLOROTHIAZIDE, LOSARTAN) [Concomitant]
  4. LERCANIDIPINE (LERCANIDIPINE HYDROCHLORIDE) [Concomitant]
  5. INDOMETHACIN (INDOMETHACIN) [Concomitant]

REACTIONS (3)
  - Sudden cardiac death [None]
  - Myocardial infarction [None]
  - Cardiac failure [None]
